FAERS Safety Report 4283489-0 (Version None)
Quarter: 2004Q1

REPORT INFORMATION
  Report Type: 
  Country: None (occurrence: None)
  Receive Date: 20040115
  Receipt Date: 20031114
  Transmission Date: 20041129
  Serious: Yes (Other)
  Sender: FDA-Public Use
  Company Number: US-JNJFOC-20030906239

PATIENT
  Age: 66 Year
  Sex: Female
  Weight: 58.9676 kg

DRUGS (8)
  1. DOXIL [Suspect]
     Indication: OVARIAN CANCER
     Dosage: INTRAVENOUS
     Route: 042
     Dates: start: 20030501, end: 20030918
  2. PROCRIT (INJECTION) ERYTHROPOIETIN [Concomitant]
  3. ATIVAN [Concomitant]
  4. OXYCONTIN [Concomitant]
  5. NEULASTA (ALL OTHER THERAPEUTIC PRODUCTS) [Concomitant]
  6. REGLAN [Concomitant]
  7. ZOFRAN [Concomitant]
  8. BENADRYL [Concomitant]

REACTIONS (8)
  - AKINESIA [None]
  - CARBOHYDRATE ANTIGEN 125 INCREASED [None]
  - DISORIENTATION [None]
  - HYPONATRAEMIA [None]
  - NAUSEA [None]
  - PAIN [None]
  - PYREXIA [None]
  - WHITE BLOOD CELL COUNT INCREASED [None]
